FAERS Safety Report 6782866-3 (Version None)
Quarter: 2010Q2

REPORT INFORMATION
  Report Type: 
  Country: None (occurrence: None)
  Receive Date: 20100617
  Receipt Date: 20100608
  Transmission Date: 20101027
  Serious: Yes (Death, Life-Threatening, Hospitalization, Other)
  Sender: FDA-Public Use
  Company Number: 2010AC000087

PATIENT
  Age: 60 Year
  Sex: Male

DRUGS (20)
  1. DIGOXIN [Suspect]
     Indication: ATRIAL FIBRILLATION
     Dosage: 0.25 MG; QD; PO
     Route: 048
     Dates: start: 20020101, end: 20080118
  2. DIGOXIN [Suspect]
     Indication: ATRIAL FIBRILLATION
     Dosage: 0.25 MG; QD; IV
     Route: 042
     Dates: start: 20080120, end: 20080121
  3. DIGOXIN [Suspect]
     Indication: ATRIAL FIBRILLATION
     Dosage: 0.25 MG; BID; IV
     Route: 042
     Dates: start: 20080119, end: 20080119
  4. DIGOXIN [Suspect]
     Indication: ATRIAL FIBRILLATION
     Dosage: 0.125 MG; QD; IV
     Route: 042
     Dates: start: 20080123, end: 20080126
  5. COUMADIN [Concomitant]
  6. DILTIAZEM [Concomitant]
  7. METOPROLOL [Concomitant]
  8. ZOCOR [Concomitant]
  9. LASIX [Concomitant]
  10. ASPIRIN [Concomitant]
  11. ENALAPRIL MALEATE [Concomitant]
  12. TYLENOL W/ CODEINE NO. 3 [Concomitant]
  13. LEVAQUIN [Concomitant]
  14. METFORMIN HCL [Concomitant]
  15. VITAMIN K TAB [Concomitant]
  16. LUPRON [Concomitant]
  17. CASODEX [Concomitant]
  18. ADVICOR [Concomitant]
  19. VASOTEC [Concomitant]
  20. AMOXICILLIN [Concomitant]

REACTIONS (46)
  - ABDOMINAL PAIN [None]
  - ANAEMIA [None]
  - AORTIC VALVE INCOMPETENCE [None]
  - AORTIC VALVE SCLEROSIS [None]
  - ARTERIOSCLEROSIS [None]
  - ATELECTASIS [None]
  - CARDIOACTIVE DRUG LEVEL INCREASED [None]
  - CEREBRAL ATROPHY [None]
  - CEREBRAL INFARCTION [None]
  - CEREBRAL ISCHAEMIA [None]
  - DILATATION ATRIAL [None]
  - DILATATION VENTRICULAR [None]
  - ECONOMIC PROBLEM [None]
  - EJECTION FRACTION DECREASED [None]
  - ELECTROCARDIOGRAM ST SEGMENT ABNORMAL [None]
  - FLUID OVERLOAD [None]
  - HYPERCOAGULATION [None]
  - INTERNATIONAL NORMALISED RATIO INCREASED [None]
  - INTRACARDIAC THROMBUS [None]
  - LEFT ATRIAL DILATATION [None]
  - LIVER FUNCTION TEST ABNORMAL [None]
  - LUNG NEOPLASM MALIGNANT [None]
  - LYMPHADENOPATHY [None]
  - METASTASES TO BONE [None]
  - METASTASES TO SPINE [None]
  - MITRAL VALVE SCLEROSIS [None]
  - MULTIPLE INJURIES [None]
  - MUSCLE STRAIN [None]
  - PARAESTHESIA [None]
  - PARTNER STRESS [None]
  - PERICARDIAL EFFUSION [None]
  - PERIPHERAL ARTERIAL OCCLUSIVE DISEASE [None]
  - PLEURAL EFFUSION [None]
  - PROSTATE CANCER METASTATIC [None]
  - PULMONARY ARTERIAL PRESSURE INCREASED [None]
  - PULMONARY HYPERTENSION [None]
  - PULMONARY MASS [None]
  - PULMONARY VALVE INCOMPETENCE [None]
  - SPUTUM CULTURE POSITIVE [None]
  - STAPHYLOCOCCAL INFECTION [None]
  - SURGERY [None]
  - THROMBOPHLEBITIS [None]
  - TRANSIENT ISCHAEMIC ATTACK [None]
  - TREATMENT NONCOMPLIANCE [None]
  - UNEVALUABLE EVENT [None]
  - VENTRICULAR HYPOKINESIA [None]
